FAERS Safety Report 4300517-4 (Version None)
Quarter: 2004Q1

REPORT INFORMATION
  Report Type: 
  Country: None (occurrence: None)
  Receive Date: 20040218
  Receipt Date: 20040204
  Transmission Date: 20041129
  Serious: Yes (Other)
  Sender: FDA-Public Use
  Company Number: US-SHR-04-020758

PATIENT
  Age: 39 Year
  Sex: Female
  Weight: 56.7 kg

DRUGS (2)
  1. YASMIN [Suspect]
     Indication: ORAL CONTRACEPTION
     Dosage: 1 TAB (S), 1X/DAY, ORAL
     Route: 048
     Dates: start: 20020401, end: 20030627
  2. TAGAMET [Concomitant]

REACTIONS (2)
  - BLOOD POTASSIUM DECREASED [None]
  - CONVULSION [None]
